FAERS Safety Report 5704135-2 (Version None)
Quarter: 2008Q2

REPORT INFORMATION
  Report Type: 
  Country: None (occurrence: None)
  Receive Date: 20080414
  Receipt Date: 20080409
  Transmission Date: 20081010
  Serious: Yes (Other)
  Sender: FDA-Public Use
  Company Number: US-ABBOTT-08P-163-0446437-00

PATIENT
  Age: 87 Year
  Sex: Female
  Weight: 55.8 kg

DRUGS (3)
  1. DILAUDID [Suspect]
     Indication: DRUG USE FOR UNKNOWN INDICATION
  2. PREGABALIN [Suspect]
     Indication: DRUG USE FOR UNKNOWN INDICATION
  3. FENTANYL CITRATE [Suspect]
     Indication: DRUG USE FOR UNKNOWN INDICATION
     Dosage: PATCH

REACTIONS (6)
  - DELUSION [None]
  - DYSARTHRIA [None]
  - DYSKINESIA [None]
  - HALLUCINATION, VISUAL [None]
  - OVERDOSE [None]
  - SLEEP DISORDER [None]
